FAERS Safety Report 5463115-5 (Version None)
Quarter: 2007Q3

REPORT INFORMATION
  Report Type: 
  Country: None (occurrence: None)
  Receive Date: 20070918
  Receipt Date: 20070918
  Transmission Date: 20080115
  Serious: Yes (Other)
  Sender: FDA-Public Use
  Company Number: None

PATIENT
  Sex: Female
  Weight: 76.2043 kg

DRUGS (2)
  1. EFFEXOR XR [Suspect]
     Indication: DEPRESSION
     Dosage: 37.5 MG ONCE DAILY PO
     Route: 048
     Dates: start: 20041101, end: 20070906
  2. EFFEXOR XR [Suspect]
     Dosage: 75 MG ONCE DAILY PO
     Route: 048
     Dates: start: 20070910, end: 20070914

REACTIONS (6)
  - DIZZINESS [None]
  - DRUG WITHDRAWAL SYNDROME [None]
  - HYPOAESTHESIA FACIAL [None]
  - NERVOUS SYSTEM DISORDER [None]
  - SPEECH DISORDER [None]
  - VISUAL DISTURBANCE [None]
